FAERS Safety Report 8793013 (Version 2)
Quarter: 2015Q1

REPORT INFORMATION
  Report Type: Report from Study
  Country: US (occurrence: US)
  Receive Date: 20120918
  Receipt Date: 20150305
  Transmission Date: 20150721
  Serious: Yes (Death)
  Sender: FDA-Public Use
  Company Number: US-ROCHE-1104541

PATIENT
  Sex: Female
  Weight: 72 kg

DRUGS (11)
  1. BENADRYL [Concomitant]
     Active Substance: DIPHENHYDRAMINE HYDROCHLORIDE
     Route: 042
  2. AVASTIN [Suspect]
     Active Substance: BEVACIZUMAB
     Route: 042
     Dates: start: 200512
  3. TYLENOL [Concomitant]
     Active Substance: ACETAMINOPHEN
     Route: 042
  4. ARANESP [Concomitant]
     Active Substance: DARBEPOETIN ALFA
     Route: 042
  5. AVASTIN [Suspect]
     Active Substance: BEVACIZUMAB
     Indication: BONE CANCER
     Route: 042
     Dates: start: 20050627
  6. GEMZAR [Concomitant]
     Active Substance: GEMCITABINE HYDROCHLORIDE
  7. CARBOPLATIN. [Concomitant]
     Active Substance: CARBOPLATIN
  8. ALOXI [Concomitant]
     Active Substance: PALONOSETRON HYDROCHLORIDE
     Route: 042
  9. AVASTIN [Suspect]
     Active Substance: BEVACIZUMAB
     Indication: MALIGNANT RESPIRATORY TRACT NEOPLASM
     Dosage: EVERY 2-3 WEEKS
     Route: 042
     Dates: start: 20050401
  10. NAVELBINE [Concomitant]
     Active Substance: VINORELBINE TARTRATE
  11. TAXOL [Concomitant]
     Active Substance: PACLITAXEL

REACTIONS (4)
  - Fatigue [Unknown]
  - Death [Fatal]
  - Off label use [Unknown]
  - Asthenia [Unknown]
